FAERS Safety Report 16097001 (Version 3)
Quarter: 2019Q4

REPORT INFORMATION
  Report Type: Report from Study
  Country: ZA (occurrence: ZA)
  Receive Date: 20190320
  Receipt Date: 20191025
  Transmission Date: 20200122
  Serious: Yes (Congenital Anomaly)
  Sender: FDA-Public Use
  Company Number: ZA-GILEAD-2019-0397257

PATIENT
  Sex: Male

DRUGS (12)
  1. METRONIDAZOLE. [Concomitant]
     Active Substance: METRONIDAZOLE
  2. AZITHROMYCIN ANHYDROUS. [Concomitant]
     Active Substance: AZITHROMYCIN ANHYDROUS
  3. MYOGELOTICUM [Concomitant]
  4. ALCOPHYLLIN [Concomitant]
  5. MAXOLON [Concomitant]
     Active Substance: METOCLOPRAMIDE HYDROCHLORIDE
  6. CLOMADERM [Concomitant]
  7. EMTRICITABINE/TENOFOVIR DISOPROXIL FUMARATE [Suspect]
     Active Substance: EMTRICITABINE\TENOFOVIR DISOPROXIL FUMARATE
     Indication: PROPHYLAXIS AGAINST HIV INFECTION
     Dosage: 200MG/300MG, QD
     Route: 064
     Dates: start: 20180822, end: 201906
  8. PARACETAMOL [Concomitant]
     Active Substance: ACETAMINOPHEN
  9. FLU [Concomitant]
     Active Substance: INFLUENZA VIRUS VACCINE
  10. ERYTHROMYCIN. [Concomitant]
     Active Substance: ERYTHROMYCIN
  11. CEFTRIAXONE. [Concomitant]
     Active Substance: CEFTRIAXONE
  12. CALCIUM + IRON [Concomitant]

REACTIONS (2)
  - Umbilical hernia [Unknown]
  - Foetal exposure during pregnancy [Recovered/Resolved]
